FAERS Safety Report 11197329 (Version 2)
Quarter: 2015Q3

REPORT INFORMATION
  Report Type: Spontaneous
  Country: JP (occurrence: JP)
  Receive Date: 20150617
  Receipt Date: 20150708
  Transmission Date: 20151125
  Serious: Yes (Other)
  Sender: FDA-Public Use
  Company Number: JP-ABBVIE-13P-087-1170648-00

PATIENT
  Age: 89 Year
  Sex: Male

DRUGS (1)
  1. LEUPLIN SR [Suspect]
     Active Substance: LEUPROLIDE ACETATE
     Indication: PROSTATE CANCER
     Route: 058
     Dates: start: 201110

REACTIONS (2)
  - Injection site ulcer [Unknown]
  - Injection site granuloma [Recovered/Resolved]

NARRATIVE: CASE EVENT DATE: 2012
